FAERS Safety Report 7320776-3 (Version None)
Quarter: 2011Q1

REPORT INFORMATION
  Report Type: 
  Country: None (occurrence: None)
  Receive Date: 20110228
  Receipt Date: 20110217
  Transmission Date: 20110831
  Serious: Yes (Hospitalization)
  Sender: FDA-Public Use
  Company Number: DE-ROCHE-755223

PATIENT
  Sex: Male
  Weight: 94 kg

DRUGS (2)
  1. TOCILIZUMAB [Suspect]
     Indication: RHEUMATOID ARTHRITIS
     Route: 042
     Dates: start: 20090910, end: 20091101
  2. TOCILIZUMAB [Suspect]
     Route: 042
     Dates: start: 20091101

REACTIONS (1)
  - BONE PAIN [None]
